FAERS Safety Report 8022998-5 (Version None)
Quarter: 2012Q1

REPORT INFORMATION
  Report Type: 
  Country: None (occurrence: None)
  Receive Date: 20120104
  Receipt Date: 20111222
  Transmission Date: 20120608
  Serious: Yes (Other)
  Sender: FDA-Public Use
  Company Number: NL-MEDIMMUNE-MEDI-0014308

PATIENT
  Sex: Female
  Weight: 3.18 kg

DRUGS (5)
  1. LACTULOSE [Concomitant]
     Dates: start: 20110101
  2. NATRIUMKALIUMFOSFAATBEVERAGE [Concomitant]
     Dates: start: 20110101
  3. SYNAGIS [Suspect]
     Indication: PREMATURE BABY
     Route: 030
     Dates: start: 20111122, end: 20111122
  4. SYNAGIS [Suspect]
     Route: 030
     Dates: start: 20111222, end: 20111222
  5. FERROFUMARATE [Concomitant]
     Dates: start: 20110101

REACTIONS (3)
  - FRACTURE [None]
  - PAIN [None]
  - INGUINAL HERNIA [None]
